FAERS Safety Report 4768658-5 (Version None)
Quarter: 2005Q3

REPORT INFORMATION
  Report Type: 
  Country: None (occurrence: None)
  Receive Date: 20050913
  Receipt Date: 20050901
  Transmission Date: 20060218
  Serious: Yes (Hospitalization)
  Sender: FDA-Public Use
  Company Number: 2005-132098-NL

PATIENT
  Age: 30 Year
  Sex: Female
  Weight: 64.5 kg

DRUGS (2)
  1. NUVARING [Suspect]
     Indication: CONTRACEPTION
     Dosage: VAGINAL
     Route: 067
     Dates: start: 20050301
  2. PENICILLIN [Suspect]
     Indication: TOOTH INFECTION
     Dosage: 1 DF DAILY ORAL
     Route: 048
     Dates: start: 20050701, end: 20050710

REACTIONS (8)
  - DRUG HYPERSENSITIVITY [None]
  - GINGIVAL DISORDER [None]
  - ORAL INTAKE REDUCED [None]
  - ORAL SOFT TISSUE DISORDER [None]
  - PREMENSTRUAL SYNDROME [None]
  - RASH [None]
  - SKIN LESION [None]
  - TOOTH INFECTION [None]
